FAERS Safety Report 25270761 (Version 1)
Quarter: 2025Q2

REPORT INFORMATION
  Report Type: Spontaneous
  Country: IR (occurrence: IR)
  Receive Date: 20250505
  Receipt Date: 20250505
  Transmission Date: 20250717
  Serious: Yes (Hospitalization, Other)
  Sender: MEITHEAL PHARMACEUTICALS
  Company Number: IR-MEITHEAL-2025MPLIT00162

PATIENT
  Age: 68 Year
  Sex: Male

DRUGS (9)
  1. VANCOMYCIN [Suspect]
     Active Substance: VANCOMYCIN
     Indication: Sepsis
     Route: 042
  2. VANCOMYCIN [Suspect]
     Active Substance: VANCOMYCIN
     Route: 042
  3. ALTEPLASE [Suspect]
     Active Substance: ALTEPLASE
     Indication: Cerebrovascular accident
     Route: 065
  4. ALTEPLASE [Suspect]
     Active Substance: ALTEPLASE
     Route: 065
  5. MEROPENEM [Suspect]
     Active Substance: MEROPENEM
     Indication: Sepsis
     Route: 065
  6. ATORVASTATIN [Suspect]
     Active Substance: ATORVASTATIN
     Indication: Product used for unknown indication
     Route: 065
  7. CARVEDILOL [Suspect]
     Active Substance: CARVEDILOL
     Indication: Product used for unknown indication
     Route: 065
  8. ASPIRIN [Suspect]
     Active Substance: ASPIRIN
     Indication: Product used for unknown indication
     Route: 065
  9. ALLOPURINOL [Suspect]
     Active Substance: ALLOPURINOL
     Indication: Product used for unknown indication
     Route: 065

REACTIONS (1)
  - Bullous haemorrhagic dermatosis [Not Recovered/Not Resolved]
